FAERS Safety Report 7944092-1 (Version None)
Quarter: 2011Q4

REPORT INFORMATION
  Report Type: 
  Country: None (occurrence: None)
  Receive Date: 20111128
  Receipt Date: 20111121
  Transmission Date: 20120403
  Serious: Yes (Hospitalization)
  Sender: FDA-Public Use
  Company Number: BR-ASTRAZENECA-2011SE70823

PATIENT
  Age: 72 Year
  Sex: Male
  Weight: 65 kg

DRUGS (7)
  1. OMEPRAZOLE MAGNESIUM [Suspect]
     Route: 048
  2. ZETIA [Concomitant]
  3. CLONAZEPAM [Concomitant]
  4. LOSARTAN POTASSIUM [Concomitant]
     Dosage: 50 MG IN THE MORNING AND 50 MG AT NIGHT
  5. BROMOPRIDE [Concomitant]
  6. CALCORT [Concomitant]
  7. OMEPRAZOLE MAGNESIUM [Suspect]
     Indication: GASTRITIS
     Route: 048
     Dates: start: 20010101, end: 20111112

REACTIONS (5)
  - INSOMNIA [None]
  - HYPERTENSION [None]
  - BLOOD CHOLESTEROL INCREASED [None]
  - GASTRIC POLYPS [None]
  - MUSCULAR DYSTROPHY [None]
